FAERS Safety Report 11960480 (Version 1)
Quarter: 2016Q1

REPORT INFORMATION
  Report Type: Report from Study
  Country: US (occurrence: US)
  Receive Date: 20160126
  Receipt Date: 20160126
  Transmission Date: 20160526
  Serious: No
  Sender: FDA-Public Use
  Company Number: US-ABBVIE-15K-163-1358426-00

PATIENT
  Age: 81 Year
  Sex: Female

DRUGS (3)
  1. HUMIRA [Suspect]
     Active Substance: ADALIMUMAB
     Route: 065
  2. HUMIRA [Suspect]
     Active Substance: ADALIMUMAB
     Dosage: 80 MG DAY 15
     Route: 065
     Dates: start: 20150102, end: 20150102
  3. HUMIRA [Suspect]
     Active Substance: ADALIMUMAB
     Indication: COLITIS ULCERATIVE
     Dosage: 160 MG DAY 1
     Route: 065
     Dates: start: 20141218, end: 20141218

REACTIONS (16)
  - Oedema peripheral [Unknown]
  - Diarrhoea [Unknown]
  - Fungal infection [Unknown]
  - Fall [Recovering/Resolving]
  - Plantar fasciitis [Recovering/Resolving]
  - Abdominal distension [Not Recovered/Not Resolved]
  - Diarrhoea [Not Recovered/Not Resolved]
  - Weight increased [Not Recovered/Not Resolved]
  - Musculoskeletal chest pain [Unknown]
  - Peripheral swelling [Recovering/Resolving]
  - Dyspepsia [Not Recovered/Not Resolved]
  - Cellulitis [Recovering/Resolving]
  - Skin ulcer [Recovering/Resolving]
  - Tenderness [Unknown]
  - Oral mucosal blistering [Unknown]
  - Contusion [Unknown]

NARRATIVE: CASE EVENT DATE: 20141218
